FAERS Safety Report 9422549 (Version 1)
Quarter: 2013Q3

REPORT INFORMATION
  Report Type: Spontaneous
  Country: US (occurrence: None)
  Receive Date: 20130725
  Receipt Date: 20130725
  Transmission Date: 20140515
  Serious: No
  Sender: FDA-Public Use
  Company Number: None

PATIENT
  Age: 66 Year
  Sex: Male

DRUGS (3)
  1. AMOXICILLIN W/CLAVULANIC ACID [Suspect]
     Indication: UPPER RESPIRATORY TRACT INFECTION
     Dates: start: 20120227, end: 20120307
  2. LORATADINE [Concomitant]
  3. SILDENAFIL [Concomitant]

REACTIONS (11)
  - Jaundice [None]
  - Hepatic enzyme increased [None]
  - Chromaturia [None]
  - Asthenia [None]
  - Nausea [None]
  - Pancreatic mass [None]
  - Blood bilirubin increased [None]
  - Alanine aminotransferase increased [None]
  - Aspartate aminotransferase increased [None]
  - Blood alkaline phosphatase increased [None]
  - Drug-induced liver injury [None]
